FAERS Safety Report 11703930 (Version 2)
Quarter: 2015Q4

REPORT INFORMATION
  Report Type: Spontaneous
  Country: IT (occurrence: IT)
  Receive Date: 20151106
  Receipt Date: 20151118
  Transmission Date: 20160304
  Serious: Yes (Hospitalization)
  Sender: FDA-Public Use
  Company Number: IT-ACCORD-035015

PATIENT
  Age: 69 Year
  Sex: Male
  Weight: 74 kg

DRUGS (13)
  1. SIMVASTATIN. [Concomitant]
     Active Substance: SIMVASTATIN
  2. CETIRIZINE [Concomitant]
     Active Substance: CETIRIZINE HYDROCHLORIDE
  3. INDAPAMIDE/INDAPAMIDE HEMIHYDRATE [Concomitant]
     Dosage: PERINDOPRIL AND INDAPAMIDE
     Route: 048
  4. GLIMEPIRIDE. [Suspect]
     Active Substance: GLIMEPIRIDE
     Indication: TYPE 2 DIABETES MELLITUS
     Route: 048
     Dates: start: 20150101, end: 20151012
  5. CARDURA [Concomitant]
     Active Substance: DOXAZOSIN MESYLATE
     Dosage: STRENGTH: 2 MG
  6. LANSOPRAZOLE. [Concomitant]
     Active Substance: LANSOPRAZOLE
  7. PLAVIX [Concomitant]
     Active Substance: CLOPIDOGREL BISULFATE
     Dosage: STRENGTH: 75 MG
  8. LATANOPROST. [Concomitant]
     Active Substance: LATANOPROST
  9. KCL RETARD [Concomitant]
     Active Substance: POTASSIUM CHLORIDE
     Dosage: STRENGTH: 600 MG
  10. TARAGIN [Concomitant]
     Dosage: STRENGTH: 40 MG/20 MG
  11. PERINDOPRIL/PERINDOPRIL ERBUMINE [Concomitant]
     Dosage: PERINDOPRIL AND INDAPAMIDE
     Route: 048
  12. VALIUM [Concomitant]
     Active Substance: DIAZEPAM
     Dosage: STRENGTH: 5 MG/ML
  13. LERCANIDIPINE [Concomitant]
     Active Substance: LERCANIDIPINE

REACTIONS (4)
  - Fasting [Recovered/Resolved]
  - Confusional state [Recovered/Resolved]
  - Intentional product misuse [Recovered/Resolved]
  - Hypoglycaemia [Recovered/Resolved]

NARRATIVE: CASE EVENT DATE: 20151012
